FAERS Safety Report 6788466-3 (Version None)
Quarter: 2010Q2

REPORT INFORMATION
  Report Type: 
  Country: None (occurrence: None)
  Receive Date: 20100623
  Receipt Date: 20080310
  Transmission Date: 20101027
  Serious: Yes (Hospitalization)
  Sender: FDA-Public Use
  Company Number: US-PFIZER INC-2008022095

PATIENT
  Sex: Female

DRUGS (1)
  1. GEODON [Suspect]
     Dates: end: 20080304

REACTIONS (5)
  - BLOOD POTASSIUM DECREASED [None]
  - DIARRHOEA [None]
  - NAUSEA [None]
  - TREMOR [None]
  - WHITE BLOOD CELL COUNT INCREASED [None]
